FAERS Safety Report 5880223-5 (Version None)
Quarter: 2008Q3

REPORT INFORMATION
  Report Type: 
  Country: None (occurrence: None)
  Receive Date: 20080912
  Receipt Date: 20080905
  Transmission Date: 20090109
  Serious: Yes (Hospitalization)
  Sender: FDA-Public Use
  Company Number: NO-ABBOTT-08P-122-0474772-00

PATIENT
  Sex: Male

DRUGS (2)
  1. HUMIRA [Suspect]
     Indication: CROHN'S DISEASE
     Route: 058
     Dates: start: 20070301
  2. HUMIRA [Suspect]
     Route: 058
     Dates: end: 20080601

REACTIONS (3)
  - MOTOR NEURONE DISEASE [None]
  - NEUROPATHY PERIPHERAL [None]
  - PARALYSIS [None]
